FAERS Safety Report 4743579-2 (Version None)
Quarter: 2005Q3

REPORT INFORMATION
  Report Type: 
  Country: None (occurrence: None)
  Receive Date: 20050809
  Receipt Date: 20050729
  Transmission Date: 20060218
  Serious: No
  Sender: FDA-Public Use
  Company Number: 05H-028-0301325-00

PATIENT
  Age: 31 Year
  Sex: Female

DRUGS (4)
  1. MORPHINE SULFATE [Suspect]
     Indication: ANAESTHESIA
     Dosage: 200 MCG, SPINAL
  2. 0.75% BUPIVACAINE IN DEXTROSE INJECTION [Suspect]
     Indication: ANAESTHESIA
     Dosage: 10.5 MG, SPINAL
  3. FENTANYL [Suspect]
     Indication: ANAESTHESIA
     Dosage: 15 MCG, SPINAL
     Route: 037
  4. SODIUM CHLORIDE [Concomitant]

REACTIONS (2)
  - BLOOD PRESSURE DECREASED [None]
  - PROCEDURAL COMPLICATION [None]
